FAERS Safety Report 4332485-3 (Version None)
Quarter: 2004Q2

REPORT INFORMATION
  Report Type: 
  Country: None (occurrence: None)
  Receive Date: 20040401
  Receipt Date: 20030704
  Transmission Date: 20050107
  Serious: Yes (Death)
  Sender: FDA-Public Use
  Company Number: EMADSS2003004296

PATIENT
  Age: 67 Year
  Sex: Female

DRUGS (11)
  1. CISAPRIDE (CISAPRIDE) TABLETS [Suspect]
     Indication: IMPAIRED GASTRIC EMPTYING
     Dosage: 10 MG, 3 IN 1 DAY
     Route: 048
     Dates: start: 20030120, end: 20030504
  2. INSULATARD (INSULIN HUMAN INJECTION, ISOPHANE) INJECTION [Concomitant]
  3. NOVORAPID (INSULIN ASPART) INJECTION [Concomitant]
  4. APROVEL (IRBESARTAN) UNSPECIFIED [Concomitant]
  5. LASIX (FUROSEMIDE) UNSPECIFIED [Concomitant]
  6. ELTHYRONE (LEVOTHYROXINE SODIUM) UNSPECIFIED [Concomitant]
  7. GLUCOPHAGE (METFORMIN HYDROCHLORIDE) UNSPECIFIED [Concomitant]
  8. LIPANTHYL (FENOFIBRATE) UNSPECIFIED [Concomitant]
  9. LOFTYL (BUFLOMEDIL HYDROCHLORIDE) UNSPECIFIED [Concomitant]
  10. CATAPRESSAN (CLONIDINE) UNSPECIFIED [Concomitant]
  11. AERIUS (DESLORATADINE) UNSPECIFIED [Concomitant]

REACTIONS (10)
  - BLOOD POTASSIUM INCREASED [None]
  - CONDITION AGGRAVATED [None]
  - ELECTROCARDIOGRAM ABNORMAL [None]
  - ELECTROCARDIOGRAM POOR R-WAVE PROGRESSION [None]
  - ELECTROCARDIOGRAM ST-T SEGMENT ELEVATION [None]
  - ELECTROCARDIOGRAM T WAVE ABNORMAL [None]
  - HYPOGLYCAEMIA [None]
  - IMPAIRED GASTRIC EMPTYING [None]
  - RENAL IMPAIRMENT [None]
  - SUDDEN DEATH [None]
